FAERS Safety Report 7286518-5 (Version None)
Quarter: 2011Q1

REPORT INFORMATION
  Report Type: 
  Country: None (occurrence: None)
  Receive Date: 20110210
  Receipt Date: 20110204
  Transmission Date: 20110831
  Serious: Yes (Hospitalization, Other)
  Sender: FDA-Public Use
  Company Number: DE-PFIZER INC-2011025657

PATIENT
  Age: 85 Year
  Sex: Female

DRUGS (5)
  1. PROTAPHANE HM [Concomitant]
     Indication: TYPE 2 DIABETES MELLITUS
     Dosage: ONCE DAILY ACCORDING TO VALUE
     Route: 058
  2. GABAPENTIN [Suspect]
     Indication: PAIN
     Dosage: 300 MG, 2X/DAY
     Route: 048
     Dates: start: 20110112, end: 20110116
  3. LEVOTHYROXINE SODIUM [Concomitant]
     Indication: HYPOTHYROIDISM
     Dosage: 50 UG, 1X/DAY
     Route: 048
  4. ACTRAPID [Concomitant]
     Indication: TYPE 2 DIABETES MELLITUS
     Dosage: THREE TIMES DAILY ACCORDING TO VALUE
     Route: 058
  5. QUERTO [Concomitant]
     Indication: HYPERTENSION
     Dosage: 25 MG, 2X/DAY
     Route: 048

REACTIONS (7)
  - URINARY TRACT INFECTION [None]
  - DEHYDRATION [None]
  - AFFECTIVE DISORDER [None]
  - HYPOTENSION [None]
  - DISTURBANCE IN ATTENTION [None]
  - RENAL FUNCTION TEST ABNORMAL [None]
  - SOMNOLENCE [None]
